FAERS Safety Report 6069291-8 (Version None)
Quarter: 2009Q1

REPORT INFORMATION
  Report Type: 
  Country: None (occurrence: None)
  Receive Date: 20090206
  Receipt Date: 20090123
  Transmission Date: 20090719
  Serious: Yes (Other)
  Sender: FDA-Public Use
  Company Number: FR-PFIZER INC-2008150853

PATIENT

DRUGS (3)
  1. REVATIO [Suspect]
     Indication: PULMONARY HYPERTENSION
     Dosage: 20 MG, 3X/DAY
     Route: 048
     Dates: start: 20060601
  2. BOSENTAN [Concomitant]
     Dosage: UNK
     Dates: start: 20020101
  3. DIGOXIN [Concomitant]
     Dosage: UNK
     Route: 048
     Dates: start: 20071101

REACTIONS (4)
  - BLEPHARITIS [None]
  - CORNEAL DISORDER [None]
  - ERYTHEMA OF EYELID [None]
  - VISUAL ACUITY REDUCED [None]
